FAERS Safety Report 5736261-6 (Version None)
Quarter: 2008Q2

REPORT INFORMATION
  Report Type: 
  Country: None (occurrence: None)
  Receive Date: 20080513
  Receipt Date: 20080507
  Transmission Date: 20081010
  Serious: Yes (Hospitalization, Disabling)
  Sender: FDA-Public Use
  Company Number: US-MERCK-0805USA01408

PATIENT
  Age: 43 Year
  Sex: Female

DRUGS (12)
  1. JANUVIA [Suspect]
     Indication: TYPE 2 DIABETES MELLITUS
     Route: 048
     Dates: start: 20080301, end: 20080423
  2. LISINOPRIL [Concomitant]
     Route: 065
  3. HYDROCHLOROTHIAZIDE [Concomitant]
     Route: 065
  4. LIPITOR [Concomitant]
     Route: 065
  5. TRAZODONE HYDROCHLORIDE [Concomitant]
     Route: 065
  6. TRAMADOL HYDROCHLORIDE [Concomitant]
     Route: 065
  7. CELEBREX [Concomitant]
     Route: 065
  8. GABAPENTIN [Concomitant]
     Route: 065
  9. CELEXA [Concomitant]
     Route: 065
  10. FLEXERIL [Concomitant]
     Route: 065
  11. GLIPIZIDE [Concomitant]
     Route: 065
  12. ASPIRIN [Concomitant]
     Route: 065

REACTIONS (1)
  - CEREBROVASCULAR ACCIDENT [None]
